FAERS Safety Report 7142643-0 (Version None)
Quarter: 2010Q4

REPORT INFORMATION
  Report Type: 
  Country: None (occurrence: None)
  Receive Date: 20101112
  Receipt Date: 20100917
  Transmission Date: 20110411
  Serious: No
  Sender: FDA-Public Use
  Company Number: 1000016312

PATIENT
  Age: 44 Year
  Sex: Female

DRUGS (8)
  1. SAVELLA [Suspect]
     Indication: BACK PAIN
     Dosage: (12.5 MG (12.5 MG, 1 IN1 D) ORAL) (25 MG (12.5 MG, 1 IN1 D) ORAL) (50 MG (25 MG, 2 IN 1 D) ORAL)
     Route: 048
     Dates: start: 20100828, end: 20100829
  2. SAVELLA [Suspect]
     Indication: BACK PAIN
     Dosage: (12.5 MG (12.5 MG, 1 IN1 D) ORAL) (25 MG (12.5 MG, 1 IN1 D) ORAL) (50 MG (25 MG, 2 IN 1 D) ORAL)
     Route: 048
     Dates: start: 20100830, end: 20100902
  3. SAVELLA [Suspect]
     Indication: BACK PAIN
     Dosage: (12.5 MG (12.5 MG, 1 IN1 D) ORAL) (25 MG (12.5 MG, 1 IN1 D) ORAL) (50 MG (25 MG, 2 IN 1 D) ORAL)
     Route: 048
     Dates: start: 20100903, end: 20100910
  4. SAVELLA [Suspect]
     Indication: BACK PAIN
     Dosage: 100 MG (50 MG, 2 IN 1 D) ORAL
     Route: 048
     Dates: start: 20100911, end: 20100917
  5. XANAX [Concomitant]
  6. CLONAZEPAM [Concomitant]
  7. LIDODERM [Concomitant]
  8. AMITRIPTYLINE HCL [Concomitant]

REACTIONS (1)
  - VISION BLURRED [None]
